FAERS Safety Report 7550436-5 (Version None)
Quarter: 2011Q2

REPORT INFORMATION
  Report Type: 
  Country: None (occurrence: None)
  Receive Date: 20110615
  Receipt Date: 20110329
  Transmission Date: 20111010
  Serious: No
  Sender: FDA-Public Use
  Company Number: US-BAUSCH-2011BL002032

PATIENT
  Age: 23 Year
  Sex: Female

DRUGS (4)
  1. GENTAMICIN SULFATE [Suspect]
     Indication: CONJUNCTIVITIS
     Route: 047
     Dates: start: 20110325, end: 20110326
  2. ORTHO TRI-CYCLEN [Concomitant]
     Indication: CONTRACEPTION
     Route: 048
  3. IBUPROFEN [Concomitant]
     Indication: OROPHARYNGEAL PAIN
     Route: 048
     Dates: start: 20110324, end: 20110330
  4. BYSTOLIC [Concomitant]
     Indication: LONG QT SYNDROME
     Route: 048
     Dates: start: 19930101

REACTIONS (1)
  - MYDRIASIS [None]
